FAERS Safety Report 5643909-3 (Version None)
Quarter: 2008Q1

REPORT INFORMATION
  Report Type: 
  Country: None (occurrence: None)
  Receive Date: 20080226
  Receipt Date: 20080214
  Transmission Date: 20080703
  Serious: Yes (Hospitalization)
  Sender: FDA-Public Use
  Company Number: 2008BI000200

PATIENT
  Age: 59 Year
  Sex: Female

DRUGS (1)
  1. AVONEX [Suspect]
     Indication: MULTIPLE SCLEROSIS
     Dosage: 30 UG;QW; IM
     Route: 030
     Dates: start: 19960419

REACTIONS (5)
  - BRONCHITIS [None]
  - DIZZINESS [None]
  - MUSCULOSKELETAL DISORDER [None]
  - NAUSEA [None]
  - PNEUMONIA [None]
